FAERS Safety Report 11231236 (Version 1)
Quarter: 2015Q2

REPORT INFORMATION
  Report Type: Spontaneous
  Country: US (occurrence: None)
  Receive Date: 20150629
  Receipt Date: 20150629
  Transmission Date: 20150821
  Serious: Yes (Life-Threatening, Hospitalization, Disabling, Other)
  Sender: FDA-Public Use
  Company Number: None

PATIENT
  Age: 56 Year
  Sex: Male
  Weight: 88.45 kg

DRUGS (16)
  1. JANUVIA [Concomitant]
     Active Substance: SITAGLIPTIN PHOSPHATE
  2. LOVASTATIN. [Concomitant]
     Active Substance: LOVASTATIN
  3. NOVOLOG SLIDING SCALE [Concomitant]
  4. NEXIUM [Concomitant]
     Active Substance: ESOMEPRAZOLE MAGNESIUM
  5. AMLODIPINE [Concomitant]
     Active Substance: AMLODIPINE BESYLATE
  6. MULTIVITAMIN [Concomitant]
     Active Substance: VITAMINS
  7. ASPRIN 81 MG [Concomitant]
  8. ASACOL HD [Concomitant]
     Active Substance: MESALAMINE
  9. LANTUS [Concomitant]
     Active Substance: INSULIN GLARGINE
  10. ENTYVIO [Suspect]
     Active Substance: VEDOLIZUMAB
     Indication: CROHN^S DISEASE
     Dosage: EVERY 8 WEEKS
     Route: 042
     Dates: start: 20150512, end: 20150526
  11. METFORMIN [Concomitant]
     Active Substance: METFORMIN HYDROCHLORIDE
  12. GLOPIDOGREL [Concomitant]
  13. METOPROLOL [Concomitant]
     Active Substance: METOPROLOL
  14. LYRICA [Concomitant]
     Active Substance: PREGABALIN
  15. TRAMADOL [Concomitant]
     Active Substance: TRAMADOL
  16. ENALAPRIL [Concomitant]
     Active Substance: ENALAPRIL

REACTIONS (7)
  - Diarrhoea [None]
  - Gastroenteritis salmonella [None]
  - Malaise [None]
  - Hepatic enzyme increased [None]
  - Dehydration [None]
  - Clostridium difficile infection [None]
  - Heart rate decreased [None]

NARRATIVE: CASE EVENT DATE: 20150607
